FAERS Safety Report 7783782-0 (Version None)
Quarter: 2011Q3

REPORT INFORMATION
  Report Type: 
  Country: None (occurrence: None)
  Receive Date: 20110928
  Receipt Date: 20110526
  Transmission Date: 20111222
  Serious: No
  Sender: FDA-Public Use
  Company Number: US-BAYER-2011-047108

PATIENT
  Age: 78 Year
  Sex: Female
  Weight: 91 kg

DRUGS (5)
  1. ALEVE (CAPLET) [Suspect]
     Indication: BACK PAIN
     Dosage: 2 U, BID
     Route: 048
     Dates: start: 20110525
  2. ASPIRIN [Concomitant]
  3. METFORMIN HCL [Concomitant]
  4. ATENOLOL [Concomitant]
  5. ZOCOR [Concomitant]

REACTIONS (1)
  - NO ADVERSE EVENT [None]
